FAERS Safety Report 21965130 (Version 1)
Quarter: 2023Q1

REPORT INFORMATION
  Report Type: Spontaneous
  Country: MY (occurrence: MY)
  Receive Date: 20230208
  Receipt Date: 20230208
  Transmission Date: 20230418
  Serious: Yes (Hospitalization)
  Sender: FDA-Public Use
  Company Number: MY-SLATE RUN PHARMACEUTICALS-23MY001495

PATIENT

DRUGS (8)
  1. METOPROLOL SUCCINATE [Suspect]
     Active Substance: METOPROLOL SUCCINATE
     Indication: Ischaemic heart disease prophylaxis
     Dosage: 50 MILLIGRAM, QD
  2. HEPARIN [Concomitant]
     Active Substance: HEPARIN SODIUM
     Indication: Ischaemic heart disease prophylaxis
  3. ASPIRIN [Concomitant]
     Active Substance: ASPIRIN
     Indication: Ischaemic heart disease prophylaxis
     Dosage: 150 MILLIGRAM, QD
  4. INSULIN NOS [Concomitant]
     Active Substance: INSULIN NOS
     Indication: Diabetes mellitus
  5. COVID-19 VACCINE [Concomitant]
     Indication: COVID-19 prophylaxis
  6. UNSPECIFIED INGREDIENT [Concomitant]
     Active Substance: UNSPECIFIED INGREDIENT
     Indication: COVID-19
  7. UNSPECIFIED INGREDIENT [Concomitant]
     Active Substance: UNSPECIFIED INGREDIENT
     Indication: COVID-19
  8. UNSPECIFIED INGREDIENT [Concomitant]
     Active Substance: UNSPECIFIED INGREDIENT
     Indication: Caesarean section

REACTIONS (2)
  - Neonatal tachypnoea [Unknown]
  - Foetal exposure during pregnancy [Unknown]
